FAERS Safety Report 5692855-8 (Version None)
Quarter: 2008Q2

REPORT INFORMATION
  Report Type: 
  Country: None (occurrence: None)
  Receive Date: 20080401
  Receipt Date: 20080324
  Transmission Date: 20081010
  Serious: Yes (Other)
  Sender: FDA-Public Use
  Company Number: 2008AL001593

PATIENT
  Age: 80 Year
  Sex: Female

DRUGS (4)
  1. DICLOFENAC SODIUM [Suspect]
     Indication: ARTHROPATHY
  2. ALENDRONIC ACID [Concomitant]
  3. CLONAZEPAM [Concomitant]
  4. ZOPICLONE [Concomitant]

REACTIONS (4)
  - HEPATOCELLULAR INJURY [None]
  - JAUNDICE [None]
  - LOSS OF CONSCIOUSNESS [None]
  - TRANSAMINASES INCREASED [None]
